FAERS Safety Report 23925268 (Version 1)
Quarter: 2024Q2

REPORT INFORMATION
  Report Type: Spontaneous
  Country: AE (occurrence: AE)
  Receive Date: 20240531
  Receipt Date: 20240531
  Transmission Date: 20240716
  Serious: Yes (Death)
  Sender: FDA-Public Use
  Company Number: AE-002147023-NVSC2024AE114120

PATIENT
  Age: 81 Year
  Sex: Female

DRUGS (1)
  1. LEQVIO [Suspect]
     Active Substance: INCLISIRAN SODIUM
     Indication: Dyslipidaemia
     Dosage: 284 MG, TWICE YEARLY
     Route: 058
     Dates: start: 202106, end: 202302

REACTIONS (3)
  - Cerebral haemorrhage [Fatal]
  - Hypoxia [Fatal]
  - Respiratory distress [Fatal]
